FAERS Safety Report 4596930-0 (Version None)
Quarter: 2005Q1

REPORT INFORMATION
  Report Type: 
  Country: None (occurrence: None)
  Receive Date: 20050228
  Receipt Date: 20041223
  Transmission Date: 20050727
  Serious: Yes (Hospitalization, Disabling, Other)
  Sender: FDA-Public Use
  Company Number: 2004240755US

PATIENT
  Age: 76 Year
  Sex: Female
  Weight: 68.0396 kg

DRUGS (6)
  1. CELEBREX [Suspect]
     Indication: ARTHRITIS
     Dosage: (1 IN 1 D), ORAL
     Route: 048
     Dates: start: 20030307, end: 20030421
  2. CELEBREX [Suspect]
     Indication: TENDONITIS
     Dosage: (1 IN 1 D), ORAL
     Route: 048
     Dates: start: 20030307, end: 20030421
  3. ATENOLOL [Concomitant]
  4. CONJUGATED ESTROGENS [Concomitant]
  5. HYDROCHLOROTHIAZIDE [Concomitant]
  6. ASPIRIN [Concomitant]

REACTIONS (25)
  - ANAEMIA [None]
  - ANGIOPATHY [None]
  - ANTINUCLEAR ANTIBODY POSITIVE [None]
  - BLINDNESS UNILATERAL [None]
  - BLOOD ALBUMIN DECREASED [None]
  - BLOOD CREATININE INCREASED [None]
  - BLOOD PRESSURE DIASTOLIC DECREASED [None]
  - CEREBRAL INFARCTION [None]
  - CEREBROVASCULAR ACCIDENT [None]
  - CHILLS [None]
  - EOSINOPHIL COUNT INCREASED [None]
  - ERYTHEMA [None]
  - FEELING ABNORMAL [None]
  - HEMIANOPIA HOMONYMOUS [None]
  - HYPOTENSION [None]
  - IMPAIRED DRIVING ABILITY [None]
  - LABORATORY TEST ABNORMAL [None]
  - LIVER DISORDER [None]
  - NAUSEA [None]
  - OEDEMA [None]
  - OSTEOARTHRITIS [None]
  - PYREXIA [None]
  - RENAL DISORDER [None]
  - VISUAL FIELD DEFECT [None]
  - VOMITING [None]
